FAERS Safety Report 7318876-7 (Version None)
Quarter: 2011Q1

REPORT INFORMATION
  Report Type: 
  Country: None (occurrence: None)
  Receive Date: 20110228
  Receipt Date: 20110216
  Transmission Date: 20110831
  Serious: No
  Sender: FDA-Public Use
  Company Number: US-JNJFOC-20110205797

PATIENT
  Sex: Female
  Weight: 58.97 kg

DRUGS (9)
  1. LIPITOR [Concomitant]
     Indication: VASCULAR GRAFT
     Route: 048
  2. COUMADIN [Concomitant]
     Dosage: TUESDAY, WEDNESDAY
     Route: 048
  3. ATENOLOL [Concomitant]
     Indication: VASCULAR GRAFT
     Route: 048
  4. FUROSEMIDE [Concomitant]
     Indication: VASCULAR GRAFT
     Route: 048
  5. CHLORACON [Concomitant]
     Indication: VASCULAR GRAFT
     Route: 048
  6. FENTANYL-100 [Suspect]
     Indication: LUMBAR SPINAL STENOSIS
     Route: 062
  7. DIOVAN [Concomitant]
     Indication: VASCULAR GRAFT
     Route: 048
  8. FENTANYL-100 [Suspect]
     Indication: ARTHRALGIA
     Route: 062
  9. COUMADIN [Concomitant]
     Indication: VASCULAR GRAFT
     Dosage: MONDAY, THURSDAY, FRIDAY, SATURDAY, SUNDAY
     Route: 048

REACTIONS (2)
  - WRONG TECHNIQUE IN DRUG USAGE PROCESS [None]
  - PRODUCT QUALITY ISSUE [None]
